FAERS Safety Report 8327663-2 (Version None)
Quarter: 2012Q2

REPORT INFORMATION
  Report Type: 
  Country: None (occurrence: None)
  Receive Date: 20120502
  Receipt Date: 20120427
  Transmission Date: 20120825
  Serious: No
  Sender: FDA-Public Use
  Company Number: US-PFIZER INC-2012105115

PATIENT
  Sex: Male

DRUGS (4)
  1. NEURONTIN [Suspect]
     Indication: DIABETIC NEUROPATHY
     Dosage: 100 MG, 2X/DAY
     Dates: start: 20020101
  2. NEURONTIN [Suspect]
     Dosage: UNK, 4X/DAY
  3. LEVEMIR [Concomitant]
     Indication: DIABETES MELLITUS
     Dosage: 30 IU, 2X/DAY
  4. NOVOLOG [Concomitant]
     Indication: DIABETES MELLITUS
     Dosage: 15 IU, AS NEEDED (THREE OR FOUR TIMES A DAY)

REACTIONS (3)
  - PAIN [None]
  - DRUG SCREEN FALSE POSITIVE [None]
  - DRUG ADMINISTRATION ERROR [None]
